FAERS Safety Report 7631803-8 (Version None)
Quarter: 2011Q3

REPORT INFORMATION
  Report Type: 
  Country: None (occurrence: None)
  Receive Date: 20110725
  Receipt Date: 20110331
  Transmission Date: 20111222
  Serious: Yes (Hospitalization)
  Sender: FDA-Public Use
  Company Number: US-BRISTOL-MYERS SQUIBB COMPANY-15648033

PATIENT
  Age: 75 Year
  Sex: Male

DRUGS (3)
  1. PLAVIX [Suspect]
  2. COUMADIN [Suspect]
  3. ASPIRIN [Suspect]

REACTIONS (1)
  - HAEMORRHAGE [None]
